FAERS Safety Report 8474834 (Version 2)
Quarter: 2013Q4

REPORT INFORMATION
  Report Type: Spontaneous
  Country: US (occurrence: US)
  Receive Date: 20120323
  Receipt Date: 20131021
  Transmission Date: 20140711
  Serious: Yes (Hospitalization, Congenital Anomaly)
  Sender: FDA-Public Use
  Company Number: US-GLAXOSMITHKLINE-A0909884A

PATIENT
  Age: 0 Day
  Sex: Female

DRUGS (1)
  1. PAXIL CR [Suspect]
     Indication: ANXIETY
     Route: 064

REACTIONS (13)
  - Patent ductus arteriosus [Unknown]
  - Atrial septal defect [Unknown]
  - Ventricular septal defect [Unknown]
  - Cardiac failure congestive [Unknown]
  - Cardiomegaly [Unknown]
  - Pulmonary hypertension [Unknown]
  - Atrial septal defect [Unknown]
  - Mitral valve disease [Unknown]
  - Coarctation of the aorta [Unknown]
  - Cardiac valve disease [Unknown]
  - Aortic occlusion [Unknown]
  - Developmental delay [Unknown]
  - Foetal exposure during pregnancy [Unknown]
